FAERS Safety Report 15881371 (Version 3)
Quarter: 2019Q1

REPORT INFORMATION
  Report Type: Spontaneous
  Country: HU (occurrence: HU)
  Receive Date: 20190128
  Receipt Date: 20190305
  Transmission Date: 20190417
  Serious: Yes (Other)
  Sender: FDA-Public Use
  Company Number: HU-BAUSCH-BL-2019-002317

PATIENT
  Age: 48 Year
  Sex: Female

DRUGS (12)
  1. OXALIPLATIN. [Suspect]
     Active Substance: OXALIPLATIN
     Indication: OVARIAN CANCER
     Dosage: QCY
     Route: 065
     Dates: start: 2013
  2. CALCIUM FOLINATE [Suspect]
     Active Substance: LEUCOVORIN CALCIUM
     Indication: OVARIAN CANCER METASTATIC
     Route: 065
  3. IFOSFAMIDE. [Suspect]
     Active Substance: IFOSFAMIDE
     Indication: OVARIAN CANCER STAGE IV
     Route: 065
     Dates: start: 201201
  4. CISPLATIN. [Suspect]
     Active Substance: CISPLATIN
     Indication: OVARIAN CANCER METASTATIC
     Route: 065
     Dates: start: 201201
  5. ETOPOSIDE. [Suspect]
     Active Substance: ETOPOSIDE
     Route: 065
     Dates: start: 201202, end: 201207
  6. FLUOROURACIL. [Suspect]
     Active Substance: FLUOROURACIL
     Indication: OVARIAN CANCER STAGE IV
     Dosage: QCY
     Route: 065
     Dates: start: 2013
  7. IFOSFAMIDE. [Suspect]
     Active Substance: IFOSFAMIDE
     Route: 065
     Dates: start: 201202, end: 201207
  8. ETOPOSIDE. [Suspect]
     Active Substance: ETOPOSIDE
     Indication: OVARIAN CANCER STAGE IV
     Route: 065
     Dates: start: 201201
  9. BEVACIZUMAB. [Suspect]
     Active Substance: BEVACIZUMAB
     Indication: OVARIAN CANCER STAGE IV
     Route: 065
  10. CISPLATIN. [Suspect]
     Active Substance: CISPLATIN
     Route: 065
     Dates: start: 201202, end: 201207
  11. LEUCOVORIN CALCIUM. [Suspect]
     Active Substance: LEUCOVORIN CALCIUM
     Indication: OVARIAN CANCER STAGE IV
     Route: 065
  12. FOLINIC ACID [Suspect]
     Active Substance: LEUCOVORIN
     Indication: OVARIAN CANCER STAGE IV
     Dosage: QCY
     Route: 065

REACTIONS (25)
  - Malaise [Unknown]
  - Abdominal pain [Unknown]
  - Renal failure [Unknown]
  - Neutropenia [Recovered/Resolved]
  - Product use in unapproved indication [Unknown]
  - White blood cell count decreased [Unknown]
  - Neuralgia [Unknown]
  - Fatigue [Unknown]
  - Off label use [Unknown]
  - Metastases to lymph nodes [Unknown]
  - Drug effect incomplete [Unknown]
  - Asthenia [Unknown]
  - Disease progression [Unknown]
  - Neuropathy peripheral [Unknown]
  - Thrombocytopenia [Recovered/Resolved]
  - Purpura [Recovered/Resolved]
  - Haemoglobin decreased [Recovered/Resolved]
  - Platelet count decreased [Unknown]
  - Feeling abnormal [Unknown]
  - Diarrhoea [Unknown]
  - Syncope [Unknown]
  - Dyspnoea exertional [Unknown]
  - Therapeutic response unexpected [Unknown]
  - Vomiting [Unknown]
  - Nausea [Unknown]

NARRATIVE: CASE EVENT DATE: 201409
